FAERS Safety Report 4691314-9 (Version None)
Quarter: 2005Q2

REPORT INFORMATION
  Report Type: 
  Country: None (occurrence: None)
  Receive Date: 20050615
  Receipt Date: 20050601
  Transmission Date: 20051028
  Serious: Yes (Other)
  Sender: FDA-Public Use
  Company Number: DE-MERCK-0506DEU00009

PATIENT
  Age: 65 Year
  Sex: Female

DRUGS (7)
  1. SINGULAIR [Suspect]
     Indication: ASTHMA
     Route: 048
  2. FLUTICASONE PROPIONATE AND SALMETEROL XINAFOATE [Suspect]
     Route: 055
  3. ALBUTEROL [Suspect]
     Route: 055
  4. TIOTROPIUM BROMIDE [Suspect]
     Route: 055
  5. DICLOFENAC SODIUM [Suspect]
     Route: 048
  6. RALOXIFENE HYDROCHLORIDE [Suspect]
     Route: 048
  7. CLARITHROMYCIN [Suspect]
     Indication: LUNG INFILTRATION
     Route: 048

REACTIONS (3)
  - DRUG INTERACTION [None]
  - HAEMORRHAGE [None]
  - THROMBOCYTOPENIA [None]
